FAERS Safety Report 19831134 (Version 1)
Quarter: 2021Q3

REPORT INFORMATION
  Report Type: Spontaneous
  Country: US (occurrence: US)
  Receive Date: 20210915
  Receipt Date: 20210915
  Transmission Date: 20211014
  Serious: No
  Sender: FDA-Public Use
  Company Number: US-BRISTOL-MYERS SQUIBB COMPANY-BMS-2021-091879

PATIENT
  Age: 14 Year
  Sex: Male

DRUGS (2)
  1. ORENCIA [Suspect]
     Active Substance: ABATACEPT
     Indication: MIXED CONNECTIVE TISSUE DISEASE
     Dosage: 125 MILLIGRAM, QWK
     Route: 058
     Dates: start: 20210904
  2. ORENCIA [Suspect]
     Active Substance: ABATACEPT
     Indication: MIXED CONNECTIVE TISSUE DISEASE
     Dosage: 125 MILLIGRAM, QWK
     Route: 058
     Dates: start: 20210904

REACTIONS (2)
  - Intentional product use issue [Unknown]
  - Syringe issue [Unknown]
